FAERS Safety Report 4546188-3 (Version None)
Quarter: 2005Q1

REPORT INFORMATION
  Report Type: 
  Country: None (occurrence: None)
  Receive Date: 20050103
  Receipt Date: 20041224
  Transmission Date: 20050727
  Serious: Yes (Hospitalization)
  Sender: FDA-Public Use
  Company Number: USA-2004-0018155

PATIENT
  Age: 42 Year
  Sex: Male

DRUGS (2)
  1. OXYCONTIN [Suspect]
     Indication: PAIN
     Dosage: SEE IMAGE
  2. OXYCODONE HCL [Concomitant]

REACTIONS (7)
  - ABASIA [None]
  - ARTHRITIS [None]
  - CONDITION AGGRAVATED [None]
  - DRUG TOLERANCE INCREASED [None]
  - INADEQUATE ANALGESIA [None]
  - INTERVERTEBRAL DISC PROTRUSION [None]
  - NERVE COMPRESSION [None]
